FAERS Safety Report 6142236-8 (Version None)
Quarter: 2009Q2

REPORT INFORMATION
  Report Type: 
  Country: None (occurrence: None)
  Receive Date: 20090403
  Receipt Date: 20070702
  Transmission Date: 20091009
  Serious: Yes (Other)
  Sender: FDA-Public Use
  Company Number: US-ASTRAZENECA-2006UW23529

PATIENT
  Age: 15257 Day
  Sex: Male
  Weight: 92.5 kg

DRUGS (8)
  1. SEROQUEL [Suspect]
     Route: 048
     Dates: start: 20040101
  2. SEROQUEL [Suspect]
     Dosage: 200 MG-500 MG
     Route: 048
     Dates: start: 20021026
  3. NEUTONTIN [Concomitant]
  4. WELLBUTRIN [Concomitant]
  5. GLIPIZIDE [Concomitant]
  6. ZYPREXA [Concomitant]
  7. DEPAKOTE [Concomitant]
  8. RESTORIL [Concomitant]

REACTIONS (4)
  - DIABETES MELLITUS [None]
  - DYSLEXIA [None]
  - HYPERKERATOSIS [None]
  - SUICIDAL IDEATION [None]
